FAERS Safety Report 5981198-0 (Version None)
Quarter: 2008Q4

REPORT INFORMATION
  Report Type: 
  Country: None (occurrence: None)
  Receive Date: 20081205
  Receipt Date: 20081127
  Transmission Date: 20090506
  Serious: Yes (Hospitalization)
  Sender: FDA-Public Use
  Company Number: B0548160A

PATIENT
  Age: 81 Year
  Sex: Female

DRUGS (13)
  1. AUGMENTIN '125' [Suspect]
     Indication: ERYSIPELAS
     Dosage: 3G PER DAY
     Route: 048
     Dates: start: 20080613, end: 20080619
  2. CALCIPARINE [Suspect]
     Indication: THROMBOSIS PROPHYLAXIS
     Dosage: .3ML THREE TIMES PER DAY
     Route: 058
     Dates: start: 20080613, end: 20080619
  3. TOBREX [Suspect]
     Indication: EYE DISORDER
     Dosage: 1DROP THREE TIMES PER DAY
     Route: 047
     Dates: start: 20080613, end: 20080618
  4. DIFFU K [Suspect]
     Route: 048
     Dates: start: 20080613, end: 20080618
  5. ZOCOR [Suspect]
     Dosage: 20MG PER DAY
     Route: 048
     Dates: end: 20080613
  6. LERCAN [Suspect]
     Dosage: 5MG PER DAY
     Route: 048
     Dates: end: 20080613
  7. DI ANTALVIC [Suspect]
     Indication: PAIN
     Route: 048
     Dates: end: 20080613
  8. ENDOTELON [Suspect]
     Indication: VENOUS INSUFFICIENCY
     Route: 048
     Dates: end: 20080613
  9. TRANDATE [Suspect]
     Route: 048
     Dates: end: 20080613
  10. HYZAAR [Suspect]
     Route: 065
     Dates: end: 20080613
  11. LASIX [Suspect]
     Route: 048
     Dates: end: 20080613
  12. BRICANYL [Concomitant]
     Indication: DRUG USE FOR UNKNOWN INDICATION
     Route: 002
     Dates: start: 20080613
  13. ATROVENT [Concomitant]
     Indication: DRUG USE FOR UNKNOWN INDICATION
     Route: 002
     Dates: start: 20080613

REACTIONS (7)
  - ACUTE GENERALISED EXANTHEMATOUS PUSTULOSIS [None]
  - LYMPHOPENIA [None]
  - PYREXIA [None]
  - RASH MACULO-PAPULAR [None]
  - SKIN LESION [None]
  - THROMBOCYTHAEMIA [None]
  - TOXIC SKIN ERUPTION [None]
